FAERS Safety Report 12123095 (Version 2)
Quarter: 2016Q2

REPORT INFORMATION
  Report Type: Spontaneous
  Country: GB (occurrence: GB)
  Receive Date: 20160227
  Receipt Date: 20160405
  Transmission Date: 20160815
  Serious: Yes (Other)
  Sender: FDA-Public Use
  Company Number: GB-AUROBINDO-AUR-APL-2016-01869

PATIENT
  Sex: Female

DRUGS (2)
  1. CITALOPRAM [Suspect]
     Active Substance: CITALOPRAM HYDROBROMIDE
     Indication: PRODUCT USED FOR UNKNOWN INDICATION
     Dosage: 40 MG, UNK
     Route: 048
  2. TREPILINE                          /00002201/ [Interacting]
     Active Substance: AMITRIPTYLINE
     Indication: PRODUCT USED FOR UNKNOWN INDICATION
     Dosage: 50 MG, UNK
     Route: 048

REACTIONS (11)
  - Abdominal distension [Unknown]
  - Drug interaction [Unknown]
  - Chest pain [Unknown]
  - Fatigue [Unknown]
  - Hypoxia [Unknown]
  - Exposure during pregnancy [Unknown]
  - Cerebrovascular accident [Unknown]
  - Amnesia [Unknown]
  - Dyspnoea [None]
  - Palpitations [Unknown]
  - Weight decreased [Unknown]
